FAERS Safety Report 9729875 (Version 2)
Quarter: 2013Q4

REPORT INFORMATION
  Report Type: Spontaneous
  Country: DE (occurrence: None)
  Receive Date: 20131203
  Receipt Date: 20131218
  Transmission Date: 20140711
  Serious: Yes (Other)
  Sender: FDA-Public Use
  Company Number: AUR-APL-2013-10001

PATIENT
  Age: 62 Year
  Sex: Female

DRUGS (12)
  1. RAMIPRIL [Suspect]
     Indication: PRODUCT USED FOR UNKNOWN INDICATION
     Dosage: 10 - 7.5 MG, ORAL
     Route: 048
     Dates: start: 20130411, end: 20130430
  2. MIRTAZAPINE [Suspect]
     Indication: PRODUCT USED FOR UNKNOWN INDICATION
     Dosage: (30 MG, 1 D)
     Route: 048
     Dates: start: 20130406, end: 20130505
  3. LORAZEPAM [Concomitant]
  4. CARVEDILOL [Concomitant]
  5. PANTOPRAZOLE (PANTOPRAZOLE) [Concomitant]
  6. TRAMAL (TRAMADOL HYDROCHLORIDE) [Concomitant]
  7. ZOPICLON (ZOPICLONE) [Concomitant]
  8. L-THYROXIN (LEVOTHYROXINE SODIUM) [Concomitant]
  9. QUETIAPINE [Suspect]
     Indication: PRODUCT USED FOR UNKNOWN INDICATION
     Dosage: (50 MG, 1 D)
     Route: 048
     Dates: start: 20130503, end: 20130624
  10. LITHIUM (LITHIUM) [Suspect]
     Indication: DEPRESSION
     Dosage: (225 MG, 1 D)
     Route: 048
     Dates: start: 20130426, end: 20130428
  11. HCT HEXAL [Suspect]
     Indication: PRODUCT USED FOR UNKNOWN INDICATION
     Dosage: (12.5 MG, 1 D)
     Route: 048
     Dates: start: 20130412, end: 20130604
  12. ELONTRIL [Suspect]
     Indication: PRODUCT USED FOR UNKNOWN INDICATION
     Route: 048
     Dates: start: 20130418

REACTIONS (10)
  - Delirium [None]
  - Confusional state [None]
  - Psychomotor hyperactivity [None]
  - Depersonalisation [None]
  - Antidepressant drug level decreased [None]
  - Cerebral atrophy [None]
  - Central nervous system lesion [None]
  - Drug interaction [None]
  - Antipsychotic drug level increased [None]
  - Neurotoxicity [None]
